FAERS Safety Report 23369537 (Version 1)
Quarter: 2024Q1

REPORT INFORMATION
  Report Type: Spontaneous
  Country: US (occurrence: None)
  Receive Date: 20240104
  Receipt Date: 20240104
  Transmission Date: 20240410
  Serious: Yes (Death, Life-Threatening, Hospitalization, Other)
  Sender: FDA-Public Use
  Company Number: None

PATIENT
  Age: 62 Year
  Sex: Female
  Weight: 125 kg

DRUGS (1)
  1. PACLITAXEL [Suspect]
     Active Substance: PACLITAXEL
     Indication: Non-small cell lung cancer
     Dosage: FREQUENCY : WEEKLY;?
     Route: 041
     Dates: start: 20231211, end: 20231226

REACTIONS (5)
  - Anaphylactic reaction [None]
  - Pulseless electrical activity [None]
  - Cardiac arrest [None]
  - Brain injury [None]
  - Respiratory arrest [None]

NARRATIVE: CASE EVENT DATE: 20231226
